FAERS Safety Report 7119915-9 (Version None)
Quarter: 2010Q4

REPORT INFORMATION
  Report Type: 
  Country: None (occurrence: None)
  Receive Date: 20101123
  Receipt Date: 20101014
  Transmission Date: 20110411
  Serious: No
  Sender: FDA-Public Use
  Company Number: US-BRISTOL-MYERS SQUIBB COMPANY-15334220

PATIENT
  Age: 73 Year
  Sex: Female

DRUGS (4)
  1. ONGLYZA [Suspect]
     Dosage: 1 DOSE,PREVIOUSLY RECEIVED THE MEDICATION FOR 1 WEEK.
  2. PLAVIX [Concomitant]
  3. LANTUS [Concomitant]
  4. PRILOSEC [Concomitant]

REACTIONS (1)
  - MUSCLE SPASMS [None]
